FAERS Safety Report 17876404 (Version 5)
Quarter: 2021Q4

REPORT INFORMATION
  Report Type: Report from Study
  Country: DE (occurrence: DE)
  Receive Date: 20200609
  Receipt Date: 20211006
  Transmission Date: 20220303
  Serious: Yes (Disabling)
  Sender: FDA-Public Use
  Company Number: NVSC2020DE157631

PATIENT
  Age: 70 Year
  Sex: Female

DRUGS (5)
  1. BROLUCIZUMAB [Suspect]
     Active Substance: BROLUCIZUMAB
     Indication: Retinal vein occlusion
     Dosage: 6 MG
     Route: 031
     Dates: start: 20200130, end: 20200526
  2. INDAPAMIDE\PERINDOPRIL [Concomitant]
     Active Substance: INDAPAMIDE\PERINDOPRIL
     Indication: Hypertension
     Dosage: UNK
     Route: 065
     Dates: start: 20100101
  3. PANTOPRAZOLE SODIUM [Concomitant]
     Active Substance: PANTOPRAZOLE SODIUM
     Indication: Gastritis prophylaxis
     Dosage: UNK
     Route: 065
     Dates: start: 20200604
  4. CHOLECALCIFEROL [Concomitant]
     Active Substance: CHOLECALCIFEROL
     Indication: General physical condition
     Dosage: UNK
     Route: 065
     Dates: start: 20190101
  5. EZETIMIBE\SIMVASTATIN [Concomitant]
     Active Substance: EZETIMIBE\SIMVASTATIN
     Indication: Hypercholesterolaemia
     Dosage: UNK
     Route: 065
     Dates: start: 20200211, end: 20210305

REACTIONS (1)
  - Retinal occlusive vasculitis [Not Recovered/Not Resolved]

NARRATIVE: CASE EVENT DATE: 20200604
